FAERS Safety Report 9133318 (Version 2)
Quarter: 2013Q1

REPORT INFORMATION
  Report Type: Spontaneous
  Country: US (occurrence: US)
  Receive Date: 20130301
  Receipt Date: 20130311
  Transmission Date: 20140127
  Serious: Yes (Hospitalization)
  Sender: FDA-Public Use
  Company Number: US-B.I. PHARMACEUTICALS,INC./RIDGEFIELD-2013-BI-05263BP

PATIENT
  Age: 69 None
  Sex: Male
  Weight: 108.86 kg

DRUGS (6)
  1. PRADAXA [Suspect]
     Indication: ATRIAL FIBRILLATION
     Dosage: 300 MG
     Route: 048
     Dates: start: 20110428, end: 20111031
  2. ASPIRIN [Concomitant]
     Dosage: 81 MG
  3. COREG [Concomitant]
     Dosage: 3.125 MG
  4. FLUCONAZOLE [Concomitant]
     Dosage: 400 MG
     Dates: start: 2010
  5. LASIX [Concomitant]
     Dosage: 80 MG
  6. KLOR-CON [Concomitant]
     Dosage: 40 MEQ

REACTIONS (4)
  - Lower gastrointestinal haemorrhage [Recovered/Resolved]
  - Coagulopathy [Unknown]
  - Epistaxis [Unknown]
  - Haemoptysis [Unknown]
